FAERS Safety Report 4796692-8 (Version None)
Quarter: 2005Q4

REPORT INFORMATION
  Report Type: 
  Country: None (occurrence: None)
  Receive Date: 20051007
  Receipt Date: 20050930
  Transmission Date: 20060501
  Serious: Yes (Hospitalization)
  Sender: FDA-Public Use
  Company Number: 05H-124-0302369-00

PATIENT
  Age: 35 Year
  Sex: Female

DRUGS (1)
  1. ABOCAIN SPINAL INJECTION (BUPIVACAINE HYDROCHLORIDE) [Suspect]
     Indication: ANAESTHESIA
     Dosage: INTRATHECAL
     Route: 037

REACTIONS (6)
  - ABNORMAL BEHAVIOUR [None]
  - AGITATION [None]
  - DISORIENTATION [None]
  - DRUG EXPOSURE DURING PREGNANCY [None]
  - HYPOGLYCAEMIA [None]
  - RESTLESSNESS [None]
